FAERS Safety Report 12671661 (Version 2)
Quarter: 2016Q3

REPORT INFORMATION
  Report Type: Spontaneous
  Country: US (occurrence: US)
  Receive Date: 20160822
  Receipt Date: 20160929
  Transmission Date: 20161109
  Serious: Yes (Hospitalization)
  Sender: FDA-Public Use
  Company Number: US-JNJFOC-20160719981

PATIENT
  Sex: Female
  Weight: 90.72 kg

DRUGS (3)
  1. INVEGA SUSTENNA [Suspect]
     Active Substance: PALIPERIDONE PALMITATE
     Indication: SCHIZOPHRENIA
     Route: 065
     Dates: start: 201411
  2. RISPERIDONE. [Suspect]
     Active Substance: RISPERIDONE
     Indication: SCHIZOPHRENIA
     Route: 048
     Dates: start: 201403, end: 201408
  3. RISPERIDONE. [Suspect]
     Active Substance: RISPERIDONE
     Indication: SCHIZOPHRENIA
     Route: 048
     Dates: start: 201411, end: 201411

REACTIONS (7)
  - Headache [Not Recovered/Not Resolved]
  - Thinking abnormal [Recovered/Resolved]
  - Ill-defined disorder [Recovered/Resolved]
  - Hallucination [Recovered/Resolved]
  - Abdominal pain upper [Not Recovered/Not Resolved]
  - Treatment noncompliance [Unknown]
  - Adverse drug reaction [Not Recovered/Not Resolved]

NARRATIVE: CASE EVENT DATE: 2014
